FAERS Safety Report 6361839-9 (Version None)
Quarter: 2009Q3

REPORT INFORMATION
  Report Type: 
  Country: None (occurrence: None)
  Receive Date: 20090918
  Receipt Date: 20090915
  Transmission Date: 20100115
  Serious: Yes (Death, Life-Threatening)
  Sender: FDA-Public Use
  Company Number: JP-JNJFOC-20090904534

PATIENT
  Sex: Male

DRUGS (19)
  1. LEVOFLOXACIN [Suspect]
     Route: 048
     Dates: start: 20090617, end: 20090820
  2. LEVOFLOXACIN [Suspect]
     Indication: PROSTATITIS
     Route: 048
     Dates: start: 20090617, end: 20090820
  3. ITRIZOLE [Suspect]
     Route: 042
     Dates: start: 20090821, end: 20090824
  4. ITRIZOLE [Suspect]
     Indication: BRONCHOPULMONARY ASPERGILLOSIS
     Dosage: 400 MG, 200 MG
     Route: 042
     Dates: start: 20090821, end: 20090824
  5. EPHEDRA TEAS [Suspect]
     Indication: COUGH
     Dosage: AS NECESSARY
     Route: 048
     Dates: start: 20090608, end: 20090820
  6. SHOUSEIRYUUTOU [Suspect]
     Indication: COUGH
     Route: 065
  7. CEFMETAZON [Concomitant]
     Indication: PNEUMONIA
     Route: 042
     Dates: start: 20090820, end: 20090821
  8. PELEX [Concomitant]
     Indication: COUGH
     Route: 048
     Dates: start: 20090608, end: 20090820
  9. CODEINE SULFATE [Concomitant]
     Indication: COUGH
     Route: 048
     Dates: start: 20090601
  10. GASTROINTESTINAL AGENT [Concomitant]
     Indication: PROPHYLAXIS
     Route: 048
     Dates: start: 20090601
  11. FLOMOX [Concomitant]
     Indication: COUGH
     Route: 048
  12. BIOFERMIN [Concomitant]
     Indication: COUGH
     Route: 048
     Dates: start: 20090608, end: 20090820
  13. HARNAL [Concomitant]
     Indication: BENIGN PROSTATIC HYPERPLASIA
     Route: 048
     Dates: start: 20090617, end: 20090830
  14. CERNILTON [Concomitant]
     Indication: BENIGN PROSTATIC HYPERPLASIA
     Route: 048
     Dates: start: 20090617, end: 20090830
  15. MUCODYNE [Concomitant]
     Indication: BRONCHITIS CHRONIC
     Route: 048
     Dates: start: 20090821, end: 20090829
  16. GENINAX [Concomitant]
     Indication: PNEUMONIA
     Route: 048
     Dates: start: 20090821, end: 20090823
  17. SHAKUYAKUKANZOUTOU [Concomitant]
     Indication: HERPES ZOSTER
     Route: 048
     Dates: start: 20090615, end: 20090818
  18. MECOBALAMIN [Concomitant]
     Indication: HERPES ZOSTER
     Route: 048
     Dates: start: 20090615, end: 20090829
  19. NEUVITA [Concomitant]
     Indication: HERPES ZOSTER
     Route: 048
     Dates: start: 20090615, end: 20090829

REACTIONS (3)
  - BACK PAIN [None]
  - CARDIAC FAILURE CONGESTIVE [None]
  - INTERSTITIAL LUNG DISEASE [None]
